FAERS Safety Report 4565446-X (Version None)
Quarter: 2005Q1

REPORT INFORMATION
  Report Type: 
  Country: None (occurrence: None)
  Receive Date: 20050125
  Receipt Date: 20050125
  Transmission Date: 20050727
  Serious: Yes (Other)
  Sender: FDA-Public Use
  Company Number: None

PATIENT
  Age: 66 Year
  Sex: Male
  Weight: 77.1115 kg

DRUGS (2)
  1. BEXTRA [Suspect]
     Indication: NERVE INJURY
     Dosage: 200MG   DAY   ORAL
     Route: 048
     Dates: start: 20040830, end: 20041001
  2. BEXTRA [Suspect]
     Indication: SPONDYLITIS
     Dosage: 200MG   DAY   ORAL
     Route: 048
     Dates: start: 20040830, end: 20041001

REACTIONS (1)
  - INTERVERTEBRAL DISC DISORDER [None]
